APPROVED DRUG PRODUCT: TANDEARIL
Active Ingredient: OXYPHENBUTAZONE
Strength: 100MG
Dosage Form/Route: TABLET;ORAL
Application: N012542 | Product #004
Applicant: NOVARTIS PHARMACEUTICALS CORP
Approved: Sep 3, 1982 | RLD: No | RS: No | Type: DISCN